FAERS Safety Report 5591517-5 (Version None)
Quarter: 2008Q1

REPORT INFORMATION
  Report Type: 
  Country: None (occurrence: None)
  Receive Date: 20080115
  Receipt Date: 20080104
  Transmission Date: 20080703
  Serious: Yes (Other)
  Sender: FDA-Public Use
  Company Number: US-JNJFOC-20080102086

PATIENT
  Age: 71 Year
  Sex: Male
  Weight: 70.31 kg

DRUGS (5)
  1. POLYCITRA-K [Suspect]
     Indication: NEPHROLITHIASIS
     Route: 048
  2. NORVASC [Concomitant]
     Route: 065
  3. COZAAR [Concomitant]
     Route: 065
  4. CELEBREX [Concomitant]
     Route: 065
  5. FLOMAX [Concomitant]
     Route: 065

REACTIONS (1)
  - OEDEMA PERIPHERAL [None]
